FAERS Safety Report 11092275 (Version 2)
Quarter: 2015Q2

REPORT INFORMATION
  Report Type: Spontaneous
  Country: US (occurrence: US)
  Receive Date: 20150506
  Receipt Date: 20150609
  Transmission Date: 20150821
  Serious: Yes (Death, Hospitalization)
  Sender: FDA-Public Use
  Company Number: US-AMGEN-USASP2015042985

PATIENT
  Age: 61 Year
  Sex: Male
  Weight: 60.32 kg

DRUGS (19)
  1. COZAAR [Concomitant]
     Active Substance: LOSARTAN POTASSIUM
     Dosage: 50 MG, NON DIALYSIS DAYS
     Route: 048
     Dates: start: 20150401
  2. CLONIDINE. [Concomitant]
     Active Substance: CLONIDINE
     Dosage: 0.1 MG, BID
     Route: 048
     Dates: start: 20140205
  3. TUMS EX [Concomitant]
     Active Substance: CALCIUM CARBONATE
     Dosage: 500 MG/1 TABLESPOON, CC- WITH MEAL
     Route: 048
     Dates: start: 20120330
  4. ASA [Concomitant]
     Active Substance: ASPIRIN
     Dosage: 325 MG, QD
     Route: 048
     Dates: start: 20091026
  5. NEPHROCAPS                         /01801401/ [Concomitant]
     Dosage: 1 TAB, QD
     Route: 048
     Dates: start: 20081022
  6. TYLENOL [Concomitant]
     Active Substance: ACETAMINOPHEN
     Dosage: 325 MG, AS NECESSARY
     Route: 048
     Dates: start: 20080925
  7. HEPATITIS B VACCINE [Concomitant]
     Active Substance: HEPATITIS B VIRUS VACCINE
     Dosage: 40 MUG, AS NECESSARY
     Route: 030
     Dates: start: 20080925
  8. FERRLECIT                          /00023541/ [Concomitant]
     Dosage: 125 MG, AT EVERY DIALYSIS
     Route: 040
     Dates: start: 20150410
  9. ARANESP [Concomitant]
     Active Substance: DARBEPOETIN ALFA
     Dosage: 25 MUG, Q2WK
     Route: 040
     Dates: start: 20150408
  10. DEXTROSE. [Concomitant]
     Active Substance: DEXTROSE
     Dosage: 50 %, AS NECESSARY
     Route: 042
     Dates: start: 20080925
  11. HECTOROL [Concomitant]
     Active Substance: DOXERCALCIFEROL
     Dosage: 2 MUG, UNK
     Route: 040
     Dates: start: 20150403
  12. MANNITOL. [Concomitant]
     Active Substance: MANNITOL
     Dosage: 12.5 G, AS NECESSARY
     Route: 042
     Dates: start: 20080925
  13. CANDIDAL [Concomitant]
     Dosage: 0.1 ML, AS NECESSARY
     Route: 023
     Dates: start: 20080925
  14. PNEUMOVAX 23 [Concomitant]
     Active Substance: PNEUMOCOCCAL VACCINE, POLYVALENT 23
     Dosage: 0.5 ML, AS NECESSARY
     Route: 030
     Dates: start: 20080925
  15. SENSIPAR [Suspect]
     Active Substance: CINACALCET HYDROCHLORIDE
     Indication: PRODUCT USED FOR UNKNOWN INDICATION
     Dosage: 30 MG, QD
     Route: 048
     Dates: start: 20140922, end: 20150418
  16. LABETALOL [Concomitant]
     Active Substance: LABETALOL\LABETALOL HYDROCHLORIDE
     Dosage: 200 MG/2 TABS, TID
     Route: 048
     Dates: start: 20150402
  17. LIPITOR [Concomitant]
     Active Substance: ATORVASTATIN CALCIUM
     Dosage: 40 MG, QD
     Route: 048
     Dates: start: 20110815
  18. PPD3 [Concomitant]
     Dosage: 0.1 ML, AS NECESSARY
     Route: 023
     Dates: start: 20080925
  19. INFLUENZA VACCINE [Concomitant]
     Active Substance: INFLUENZA VIRUS VACCINE
     Dosage: 0.5 ML, AS NECESSARY
     Route: 030
     Dates: start: 20080925

REACTIONS (3)
  - Haemorrhage intracranial [Fatal]
  - Nausea [Unknown]
  - Vomiting [Unknown]

NARRATIVE: CASE EVENT DATE: 20150416
